FAERS Safety Report 5845303-9 (Version None)
Quarter: 2008Q3

REPORT INFORMATION
  Report Type: 
  Country: None (occurrence: None)
  Receive Date: 20080814
  Receipt Date: 20080811
  Transmission Date: 20090109
  Serious: Yes (Life-Threatening, Hospitalization, Other)
  Sender: FDA-Public Use
  Company Number: US-KINGPHARMUSA00001-K200800917

PATIENT

DRUGS (6)
  1. ALTACE [Suspect]
     Indication: ARTERIOSCLEROSIS
     Dosage: 2.5 MG, QD
     Dates: start: 19980101, end: 20080416
  2. CARDIZEM [Concomitant]
     Indication: CORONARY ARTERY DISEASE
  3. ASPIRIN [Concomitant]
  4. ZOCOR [Concomitant]
     Indication: BLOOD CHOLESTEROL
  5. MULTIVITAMIN                       /00831701/ [Concomitant]
  6. ISOSORBIDE DINITRATE [Concomitant]

REACTIONS (3)
  - DYSPNOEA [None]
  - MYOCARDIAL INFARCTION [None]
  - THROAT TIGHTNESS [None]
